FAERS Safety Report 17513820 (Version 2)
Quarter: 2020Q1

REPORT INFORMATION
  Report Type: Spontaneous
  Country: US (occurrence: US)
  Receive Date: 20200306
  Receipt Date: 20200306
  Transmission Date: 20200409
  Serious: Yes (Life-Threatening, Hospitalization, Other)
  Sender: FDA-Public Use
  Company Number: US-GILEAD-2020-0453067

PATIENT
  Age: 14 Year
  Sex: Female
  Weight: 99 kg

DRUGS (7)
  1. AMBRISENTAN [Suspect]
     Active Substance: AMBRISENTAN
     Indication: PULMONARY HYPERTENSION
     Dosage: 10 MG
     Route: 065
     Dates: start: 20181023, end: 20190331
  2. LASIX [Concomitant]
     Active Substance: FUROSEMIDE
  3. REMODULIN [Suspect]
     Active Substance: TREPROSTINIL
     Indication: PULMONARY ARTERIAL HYPERTENSION
     Dosage: 0.08 UG/KG
     Route: 058
     Dates: start: 20181116, end: 20200114
  4. TADALAFIL. [Suspect]
     Active Substance: TADALAFIL
     Indication: PULMONARY HYPERTENSION
     Dosage: 40 MG, QD
     Route: 065
     Dates: start: 20181102, end: 20200102
  5. WARFARIN [Suspect]
     Active Substance: WARFARIN
     Indication: PULMONARY HYPERTENSION
     Dosage: UNK (VARYING DOSE ON BAND ON INR)
     Route: 065
     Dates: start: 20181101, end: 20190416
  6. REMODULIN [Suspect]
     Active Substance: TREPROSTINIL
     Indication: PULMONARY HYPERTENSION
     Dosage: 0.102 UNK
     Route: 058
     Dates: start: 20190124
  7. PRILOSEC [Concomitant]
     Active Substance: OMEPRAZOLE MAGNESIUM

REACTIONS (10)
  - Toxicity to various agents [Recovered/Resolved]
  - Hypotension [Recovered/Resolved]
  - Drug-induced liver injury [Unknown]
  - Device malfunction [Recovered/Resolved]
  - Overdose [Recovered/Resolved]
  - Liver disorder [Unknown]
  - Ischaemic hepatitis [Recovered/Resolved]
  - Hepatic enzyme increased [Unknown]
  - Acute on chronic liver failure [Not Recovered/Not Resolved]
  - Hepatitis [Unknown]

NARRATIVE: CASE EVENT DATE: 201812
